FAERS Safety Report 9271719 (Version 1)
Quarter: 2013Q2

REPORT INFORMATION
  Report Type: Report from Study
  Country: JP (occurrence: JP)
  Receive Date: 20130506
  Receipt Date: 20130506
  Transmission Date: 20140414
  Serious: Yes (Disabling, Other)
  Sender: FDA-Public Use
  Company Number: JP-BRISTOL-MYERS SQUIBB COMPANY-14496665

PATIENT
  Age: 79 Year
  Sex: Male
  Weight: 58.55 kg

DRUGS (4)
  1. ERBITUX SOLN FOR INF 5MG/ML [Suspect]
     Indication: RECTAL CANCER
     Dosage: 1ST INF,25NOV08,620MG/BODY;2ND,390MG/BODY,02DEC08;3RD,09DEC08;4TH,9JAN09;5TH,16JAN09;6TH,23JAN09.
     Route: 042
     Dates: start: 20081125, end: 20090326
  2. POLARAMINE [Concomitant]
     Indication: PREMEDICATION
     Dosage: EVERY TIME BEFORE ERBITUX INF?1.4286MG
     Route: 041
     Dates: start: 20081125, end: 20090326
  3. DECADRON [Concomitant]
     Indication: PREMEDICATION
     Dosage: EVERY TIME BEFORE ERBITUX INF?1.1429MG
     Route: 041
     Dates: start: 20081125, end: 20090326
  4. KYTRIL [Concomitant]
     Indication: ANTIEMETIC SUPPORTIVE CARE
     Route: 041
     Dates: start: 20081125, end: 20090326

REACTIONS (2)
  - Hyperkalaemia [Recovered/Resolved]
  - Acne [Recovering/Resolving]
